FAERS Safety Report 4462349-6 (Version None)
Quarter: 2004Q3

REPORT INFORMATION
  Report Type: 
  Country: None (occurrence: None)
  Receive Date: 20040924
  Receipt Date: 20040915
  Transmission Date: 20050211
  Serious: Yes (Hospitalization, Other)
  Sender: FDA-Public Use
  Company Number: SUS1-2004-00447

PATIENT
  Sex: Female

DRUGS (1)
  1. AGRYLIN [Suspect]
     Dosage: 2.5 MG, 4X/DAY;QID, ORAL
     Route: 048

REACTIONS (6)
  - BILE DUCT OBSTRUCTION [None]
  - FIBROSIS [None]
  - HEPATIC ENZYME INCREASED [None]
  - JAUNDICE CHOLESTATIC [None]
  - PANCREATIC DISORDER [None]
  - PANCREATIC MASS [None]
